FAERS Safety Report 9880267 (Version 1)
Quarter: 2014Q1

REPORT INFORMATION
  Report Type: Spontaneous
  Country: US (occurrence: US)
  Receive Date: 20140207
  Receipt Date: 20140207
  Transmission Date: 20141002
  Serious: Yes (Other)
  Sender: FDA-Public Use
  Company Number: US-ASTRAZENECA-2014SE07369

PATIENT
  Age: 71 Year
  Sex: Female
  Weight: 71.7 kg

DRUGS (9)
  1. SYMBICORT [Suspect]
     Indication: ASTHMA
     Dosage: 160/4.5, 2 PUFFS TWICE A DAY
     Route: 055
     Dates: start: 201209
  2. LISINOPRIL [Suspect]
     Indication: BLOOD PRESSURE ABNORMAL
     Route: 048
  3. MOLTAQ [Concomitant]
     Indication: ATRIAL FIBRILLATION
     Dates: start: 201209
  4. PRAVASTATIN [Concomitant]
     Indication: BLOOD CHOLESTEROL ABNORMAL
  5. DIOVAN [Concomitant]
     Indication: BLOOD PRESSURE ABNORMAL
  6. CARTIA [Concomitant]
     Indication: ATRIAL FIBRILLATION
  7. FUROSEMIDE [Concomitant]
     Indication: DIURETIC THERAPY
  8. DEXILANT [Concomitant]
  9. MECLIZINE [Concomitant]
     Indication: VERTIGO

REACTIONS (10)
  - Deafness [Unknown]
  - Eye disorder [Unknown]
  - Vision blurred [Unknown]
  - Weight increased [Unknown]
  - Atrial fibrillation [Unknown]
  - Hypertension [Unknown]
  - Glucose tolerance impaired [Unknown]
  - Drug hypersensitivity [Unknown]
  - Cough [Unknown]
  - Drug ineffective [Unknown]
